FAERS Safety Report 7960453-9 (Version None)
Quarter: 2011Q4

REPORT INFORMATION
  Report Type: 
  Country: None (occurrence: None)
  Receive Date: 20111206
  Receipt Date: 20111121
  Transmission Date: 20120403
  Serious: Yes (Other)
  Sender: FDA-Public Use
  Company Number: US-NICOBRDEV-2011-20865

PATIENT
  Age: 48 Year
  Sex: Male
  Weight: 109 kg

DRUGS (2)
  1. OXYTROL [Suspect]
     Indication: URGE INCONTINENCE
     Dosage: UNK
  2. OXYTROL [Suspect]
     Indication: BLADDER SPASM

REACTIONS (4)
  - AGITATION [None]
  - ANAESTHETIC COMPLICATION NEUROLOGICAL [None]
  - DELIRIUM [None]
  - GRAND MAL CONVULSION [None]
